FAERS Safety Report 5115507-1 (Version None)
Quarter: 2006Q3

REPORT INFORMATION
  Report Type: 
  Country: None (occurrence: None)
  Receive Date: 20060927
  Receipt Date: 20060922
  Transmission Date: 20061208
  Serious: Yes (Hospitalization)
  Sender: FDA-Public Use
  Company Number: 2006SE05115

PATIENT
  Sex: Male

DRUGS (3)
  1. BLOPRESS [Suspect]
     Indication: HYPERTENSION
     Route: 048
  2. CALCIUM CHANNEL BLOCKERS [Concomitant]
     Route: 065
  3. (CHINESE MEDICINES) [Concomitant]
     Route: 065

REACTIONS (3)
  - ARRHYTHMIA [None]
  - BLOOD POTASSIUM INCREASED [None]
  - BRADYCARDIA [None]
